FAERS Safety Report 7715345-7 (Version None)
Quarter: 2011Q3

REPORT INFORMATION
  Report Type: 
  Country: None (occurrence: None)
  Receive Date: 20110810
  Receipt Date: 20110629
  Transmission Date: 20111222
  Serious: No
  Sender: FDA-Public Use
  Company Number: 1000021647

PATIENT
  Age: 61 Year
  Sex: Female

DRUGS (5)
  1. AMITRIPTYLINE (AMITRIPTYLINE) (AMITRIPTYLINE) [Concomitant]
  2. HYDROCODONE (HYDROCODONE) (HYDROCODONE) [Concomitant]
  3. SAVELLA [Suspect]
     Indication: FIBROMYALGIA
     Dosage: 12.5 MG (12.5 MG, 1 IN 1 D), ORAL
     Route: 048
     Dates: start: 20110616, end: 20110617
  4. MORPHINE [Concomitant]
  5. CLONAZEPAM [Concomitant]

REACTIONS (3)
  - BLOOD GLUCOSE INCREASED [None]
  - PAIN [None]
  - HYPOAESTHESIA [None]
